FAERS Safety Report 23572865 (Version 1)
Quarter: 2024Q1

REPORT INFORMATION
  Report Type: Other
  Country: US (occurrence: None)
  Receive Date: 20240227
  Receipt Date: 20240227
  Transmission Date: 20240409
  Serious: Yes (Hospitalization, Other)
  Sender: FDA-Public Use
  Company Number: US-ROCHE-1917967

PATIENT
  Age: 52 Year
  Sex: Female
  Weight: 85.352 kg

DRUGS (8)
  1. RITUXAN [Suspect]
     Active Substance: RITUXIMAB
     Indication: Relapsing-remitting multiple sclerosis
     Dosage: INFUSE 1000MG INTRAVENOUSLY ON DAY 1 AND DAY 15, THEN REPEAT EVERY 6 MONTHS
     Route: 042
     Dates: start: 2016, end: 2018
  2. RITUXAN [Suspect]
     Active Substance: RITUXIMAB
     Dosage: 1000 MG DAY ONE AND DAY 15, EVERY SIX MONTHS
     Route: 042
     Dates: start: 202010
  3. OCREVUS [Suspect]
     Active Substance: OCRELIZUMAB
     Indication: Relapsing-remitting multiple sclerosis
     Route: 042
     Dates: start: 2018, end: 202107
  4. COPAXONE [Concomitant]
     Active Substance: GLATIRAMER ACETATE
  5. GILENYA [Concomitant]
     Active Substance: FINGOLIMOD HYDROCHLORIDE
  6. REBIF [Concomitant]
     Active Substance: INTERFERON BETA-1A
  7. TECFIDERA [Concomitant]
     Active Substance: DIMETHYL FUMARATE
  8. TYSABRI [Concomitant]
     Active Substance: NATALIZUMAB

REACTIONS (10)
  - COVID-19 [Recovered/Resolved]
  - Hemiparesis [Unknown]
  - Off label use [Unknown]
  - Multiple sclerosis [Recovered/Resolved]
  - Off label use [Unknown]
  - Therapeutic response shortened [Unknown]
  - Cognitive disorder [Not Recovered/Not Resolved]
  - Gait disturbance [Unknown]
  - Constipation [Recovered/Resolved]
  - Abdominal pain upper [Recovered/Resolved]

NARRATIVE: CASE EVENT DATE: 20160101
